FAERS Safety Report 12528856 (Version 1)
Quarter: 2016Q3

REPORT INFORMATION
  Report Type: Spontaneous
  Country: IT (occurrence: IT)
  Receive Date: 20160705
  Receipt Date: 20160705
  Transmission Date: 20161109
  Serious: Yes (Disabling)
  Sender: FDA-Public Use
  Company Number: IT-PFIZER INC-2016325951

PATIENT
  Age: 35 Year
  Sex: Male

DRUGS (2)
  1. AMOXICILLIN TRIHYDRATE [Suspect]
     Active Substance: AMOXICILLIN
  2. FELDENE [Suspect]
     Active Substance: PIROXICAM

REACTIONS (4)
  - Respiratory arrest [Recovered/Resolved with Sequelae]
  - Post-anoxic myoclonus [Recovered/Resolved with Sequelae]
  - Coma [Recovered/Resolved with Sequelae]
  - Anaphylactic shock [Recovered/Resolved with Sequelae]

NARRATIVE: CASE EVENT DATE: 19960101
